FAERS Safety Report 25883589 (Version 1)
Quarter: 2025Q4

REPORT INFORMATION
  Report Type: Report from Study
  Country: CA (occurrence: CA)
  Receive Date: 20251006
  Receipt Date: 20251006
  Transmission Date: 20260118
  Serious: Yes (Other)
  Sender: TAKEDA
  Company Number: CA-TAKEDA-2024TUS043675

PATIENT
  Age: 53 Year
  Sex: Male
  Weight: 177 kg

DRUGS (3)
  1. VEDOLIZUMAB [Suspect]
     Active Substance: VEDOLIZUMAB
     Indication: Crohn^s disease
     Dosage: 300 MILLIGRAM
  2. VEDOLIZUMAB [Suspect]
     Active Substance: VEDOLIZUMAB
     Indication: Crohn^s disease
     Dosage: 108 MILLIGRAM, Q2WEEKS
  3. PREDNISONE [Concomitant]
     Active Substance: PREDNISONE
     Dosage: UNK

REACTIONS (8)
  - Pyoderma gangrenosum [Unknown]
  - Cryptosporidiosis infection [Unknown]
  - Frequent bowel movements [Unknown]
  - Diarrhoea [Unknown]
  - Eye inflammation [Unknown]
  - Aphthous ulcer [Unknown]
  - Erythema nodosum [Unknown]
  - Arthralgia [Unknown]
